FAERS Safety Report 4303384-8 (Version None)
Quarter: 2004Q1

REPORT INFORMATION
  Report Type: 
  Country: None (occurrence: None)
  Receive Date: 20040223
  Receipt Date: 20030528
  Transmission Date: 20041129
  Serious: Yes (Other)
  Sender: FDA-Public Use
  Company Number: 2003-DE-02086UP

PATIENT
  Age: 68 Year
  Sex: Female

DRUGS (3)
  1. MIRAPEXIN(TA) (PRAMIPEXOLE) [Suspect]
     Indication: PARKINSON'S DISEASE
     Dosage: 0.54 MG (01.8 MG, 3 IN 1 D), PO
     Route: 048
  2. MADOPAR (MADOPAR (TA) [Suspect]
     Indication: PARKINSON'S DISEASE
     Dosage: 62.5 MG, PO
     Route: 048
  3. THYROXIN (LEVOTHYROXINE SODIUM) [Concomitant]

REACTIONS (2)
  - CYANOSIS [None]
  - PAIN IN EXTREMITY [None]
